FAERS Safety Report 9220658 (Version 1)
Quarter: 2013Q2

REPORT INFORMATION
  Report Type: Spontaneous
  Country: US (occurrence: US)
  Receive Date: 20130409
  Receipt Date: 20130409
  Transmission Date: 20140414
  Serious: Yes (Death)
  Sender: FDA-Public Use
  Company Number: US-ASTRAZENECA-2013SE22495

PATIENT
  Age: 71 Year
  Sex: Male

DRUGS (3)
  1. BRILINTA [Suspect]
     Indication: ACUTE CORONARY SYNDROME
     Route: 048
  2. CLOPIDIGREL [Concomitant]
  3. OTHER ANTIPLATELETS [Concomitant]

REACTIONS (1)
  - Thrombosis in device [Fatal]
